FAERS Safety Report 17148650 (Version 1)
Quarter: 2019Q4

REPORT INFORMATION
  Report Type: Spontaneous
  Country: JP (occurrence: JP)
  Receive Date: 20191213
  Receipt Date: 20191213
  Transmission Date: 20200122
  Serious: Yes (Hospitalization, Other)
  Sender: FDA-Public Use
  Company Number: JP-SA-2019SA341986

PATIENT
  Age: 75 Year
  Sex: Male

DRUGS (5)
  1. PREDNISOLONE. [Suspect]
     Active Substance: PREDNISOLONE
     Indication: UVEITIS
     Dosage: 0.5 MG/KG, QD
  2. BETAMETHASONE. [Suspect]
     Active Substance: BETAMETHASONE
     Indication: OCULAR SARCOIDOSIS
  3. BETAMETHASONE. [Suspect]
     Active Substance: BETAMETHASONE
     Indication: UVEITIS
     Dosage: UNK UNK, QID, STRENGTH: 0.1%
  4. TRIAMCINOLONE ACETONIDE. [Suspect]
     Active Substance: TRIAMCINOLONE ACETONIDE
     Indication: UVEITIS
     Dosage: 20 MG
  5. TRIAMCINOLONE ACETONIDE. [Suspect]
     Active Substance: TRIAMCINOLONE ACETONIDE
     Indication: OCULAR SARCOIDOSIS

REACTIONS (6)
  - Necrotising retinitis [Recovering/Resolving]
  - Nodular vasculitis [Recovering/Resolving]
  - Vascular occlusion [Recovering/Resolving]
  - Vision blurred [Recovering/Resolving]
  - Retinal detachment [Recovered/Resolved]
  - Varicella zoster virus infection [Unknown]
